FAERS Safety Report 9914780 (Version 2)
Quarter: 2014Q1

REPORT INFORMATION
  Report Type: Report from Study
  Country: NL (occurrence: NL)
  Receive Date: 20140220
  Receipt Date: 20140331
  Transmission Date: 20141002
  Serious: Yes (Other)
  Sender: FDA-Public Use
  Company Number: PHHY2014NL020186

PATIENT
  Sex: Female

DRUGS (5)
  1. ZOMETA [Suspect]
     Indication: BREAST CANCER METASTATIC
     Dosage: 4 MG PER 100 ML ONCE EVERY 6 WEEKS
     Route: 042
  2. ZOMETA [Suspect]
     Dosage: 4 MG PER 100 ML ONCE EVERY 6 WEEKS
     Route: 042
     Dates: start: 20130718
  3. ZOMETA [Suspect]
     Dosage: 4 MG PER 100 ML ONCE EVERY 6 WEEKS
     Route: 042
     Dates: start: 20140202
  4. ZOMETA [Suspect]
     Dosage: 4 MG PER 100 ML ONCE EVERY 6 WEEKS
     Route: 042
     Dates: start: 20140214
  5. ZOMETA [Suspect]
     Dosage: 4 MG PER 100 ML ONCE EVERY 6 WEEKS
     Route: 042
     Dates: start: 20140327

REACTIONS (7)
  - Neoplasm progression [Not Recovered/Not Resolved]
  - Neoplasm [Unknown]
  - Eyelid ptosis [Not Recovered/Not Resolved]
  - Eye movement disorder [Not Recovered/Not Resolved]
  - Metastases to bone [Not Recovered/Not Resolved]
  - Metastases to lung [Not Recovered/Not Resolved]
  - Tumour marker increased [Not Recovered/Not Resolved]
